FAERS Safety Report 11308705 (Version 4)
Quarter: 2015Q3

REPORT INFORMATION
  Report Type: Spontaneous
  Country: US (occurrence: US)
  Receive Date: 20150724
  Receipt Date: 20150806
  Transmission Date: 20151125
  Serious: No
  Sender: FDA-Public Use
  Company Number: US-TEVA-580815USA

PATIENT
  Age: 34 Year
  Sex: Female

DRUGS (2)
  1. NUVIGIL [Suspect]
     Active Substance: ARMODAFINIL
     Indication: NARCOLEPSY
     Route: 048
     Dates: start: 201501
  2. PROVIGIL [Suspect]
     Active Substance: MODAFINIL
     Indication: NARCOLEPSY
     Dates: start: 2013, end: 201503

REACTIONS (7)
  - Drug effect decreased [Not Recovered/Not Resolved]
  - Photophobia [Recovered/Resolved]
  - Dry mouth [Recovered/Resolved]
  - Somnolence [Unknown]
  - Metabolic disorder [Unknown]
  - Headache [Recovered/Resolved]
  - Therapeutic response unexpected [Unknown]

NARRATIVE: CASE EVENT DATE: 2013
